FAERS Safety Report 23337437 (Version 5)
Quarter: 2024Q1

REPORT INFORMATION
  Report Type: Report from Study
  Country: AE (occurrence: AE)
  Receive Date: 20231226
  Receipt Date: 20240308
  Transmission Date: 20240409
  Serious: Yes (Hospitalization, Other)
  Sender: FDA-Public Use
  Company Number: AE-JNJFOC-20231248079

PATIENT
  Sex: Male

DRUGS (4)
  1. BORTEZOMIB [Suspect]
     Active Substance: BORTEZOMIB
     Indication: Plasma cell myeloma
     Dosage: 3 MILLIGRAM, 1/WEEK
     Route: 058
     Dates: start: 202303, end: 202307
  2. BORTEZOMIB [Suspect]
     Active Substance: BORTEZOMIB
     Dosage: 3 MILLIGRAM, 2/WEEK
     Route: 058
  3. DARZALEX [Suspect]
     Active Substance: DARATUMUMAB
     Indication: Plasma cell myeloma
     Dosage: 1500 MILLIGRAM, 1/WEEK
     Route: 041
     Dates: start: 202303, end: 202307
  4. DARZALEX [Suspect]
     Active Substance: DARATUMUMAB
     Dosage: 1300 MILLIGRAM
     Route: 041

REACTIONS (8)
  - Pneumonia [Recovering/Resolving]
  - Lower respiratory tract infection bacterial [Recovering/Resolving]
  - Blood pressure decreased [Recovering/Resolving]
  - Loss of consciousness [Recovering/Resolving]
  - Blood glucose decreased [Recovering/Resolving]
  - Nausea [Recovering/Resolving]
  - Full blood count abnormal [Recovering/Resolving]
  - Plasma cell myeloma [Recovering/Resolving]
